FAERS Safety Report 10097500 (Version 3)
Quarter: 2014Q2

REPORT INFORMATION
  Report Type: Spontaneous
  Country: ZA (occurrence: ZA)
  Receive Date: 20140423
  Receipt Date: 20140630
  Transmission Date: 20141212
  Serious: Yes (Hospitalization)
  Sender: FDA-Public Use
  Company Number: ZA-AMGEN-ZAFSP2014029424

PATIENT
  Age: 57 Year
  Sex: Female

DRUGS (1)
  1. ENBREL [Suspect]
     Indication: ANKYLOSING SPONDYLITIS
     Dosage: 50 MG, WEEKLY
     Route: 058
     Dates: start: 20121119, end: 20140604

REACTIONS (4)
  - Joint swelling [Recovering/Resolving]
  - Joint effusion [Recovering/Resolving]
  - Pain [Recovering/Resolving]
  - Arthritis infective [Recovering/Resolving]
